FAERS Safety Report 21669827 (Version 1)
Quarter: 2022Q4

REPORT INFORMATION
  Report Type: Report from Study
  Country: US (occurrence: US)
  Receive Date: 20221201
  Receipt Date: 20221201
  Transmission Date: 20230113
  Serious: Yes (Hospitalization, Other)
  Sender: FDA-Public Use
  Company Number: US-GILEAD-2022-0606748

PATIENT
  Age: 14 Year
  Sex: Male

DRUGS (8)
  1. AZTREONAM LYSINE [Suspect]
     Active Substance: AZTREONAM LYSINE
     Indication: Cystic fibrosis
     Dosage: 75 MG. INHALE 75MG INTO THE LUNGS 3 TIMES DAILY FOR 28 DAYS AND THEN OFF FOR 28 DAYS AS DIRECTED.
     Route: 055
     Dates: start: 20220210
  2. FLUTICASONE [Concomitant]
     Active Substance: FLUTICASONE
  3. PULMOZYME [Concomitant]
     Active Substance: DORNASE ALFA
  4. POLYETHYLENE GLYCOL ELECTROLYTE POWDER(I) [Concomitant]
  5. DULERA [Concomitant]
     Active Substance: FORMOTEROL FUMARATE DIHYDRATE\MOMETASONE FUROATE
  6. SODIUM CHLORIDE [Concomitant]
     Active Substance: SODIUM CHLORIDE
  7. VITAMIN D3 [Concomitant]
     Active Substance: CHOLECALCIFEROL
  8. URSODIOL [Concomitant]
     Active Substance: URSODIOL

REACTIONS (4)
  - Influenza [Unknown]
  - Pyrexia [Unknown]
  - Pneumonia [Unknown]
  - Product dose omission issue [Unknown]
